FAERS Safety Report 8992117 (Version 4)
Quarter: 2013Q2

REPORT INFORMATION
  Report Type: Spontaneous
  Country: JP (occurrence: JP)
  Receive Date: 20121231
  Receipt Date: 20130404
  Transmission Date: 20140414
  Serious: Yes (Other)
  Sender: FDA-Public Use
  Company Number: JP-B.I. PHARMACEUTICALS,INC./RIDGEFIELD-2012-BI-04109NB

PATIENT
  Age: 81 Year
  Sex: Male
  Weight: 60.3 kg

DRUGS (8)
  1. BI-SIFROL [Suspect]
     Dosage: 0.5 MG
     Route: 065
     Dates: start: 20121108, end: 20121223
  2. BI-SIFROL [Suspect]
     Dosage: 0.5 MG
     Route: 065
     Dates: start: 20121112, end: 20121219
  3. MENESIT [Suspect]
     Dosage: 300 MG
     Route: 065
     Dates: start: 201003
  4. ARICEPT [Suspect]
     Dosage: 5 MG
     Route: 065
     Dates: start: 20120907, end: 20130107
  5. MYSLEE [Suspect]
     Dosage: 5 MG
     Route: 065
     Dates: start: 20121001
  6. ALINAMIN-F [Concomitant]
     Dosage: 75 MG
     Route: 065
     Dates: end: 20121016
  7. METHYCOOL [Concomitant]
     Dosage: 500 MCG
     Route: 065
     Dates: end: 20121016
  8. RESLIN [Concomitant]
     Indication: RESTLESSNESS
     Dosage: 25 MG
     Route: 065
     Dates: end: 20121016

REACTIONS (1)
  - Neutropenia [Not Recovered/Not Resolved]
